FAERS Safety Report 5740364-X (Version None)
Quarter: 2008Q2

REPORT INFORMATION
  Report Type: 
  Country: None (occurrence: None)
  Receive Date: 20080515
  Receipt Date: 20080502
  Transmission Date: 20081010
  Serious: Yes (Hospitalization)
  Sender: FDA-Public Use
  Company Number: GXKR2008DE04166

PATIENT
  Sex: Female

DRUGS (1)
  1. DOXEPIN 1A PHARMA (NGX)(DOXEPIN) UNKNOWN, 75 [Suspect]
     Dosage: TRANSPLACENTAL
     Route: 064

REACTIONS (2)
  - DRUG EXPOSURE DURING PREGNANCY [None]
  - DRUG WITHDRAWAL SYNDROME NEONATAL [None]
